FAERS Safety Report 8067787-0 (Version None)
Quarter: 2012Q1

REPORT INFORMATION
  Report Type: 
  Country: None (occurrence: None)
  Receive Date: 20120124
  Receipt Date: 20120117
  Transmission Date: 20120608
  Serious: Yes (Hospitalization, Other)
  Sender: FDA-Public Use
  Company Number: JP-BAYER-2011-082810

PATIENT
  Age: 79 Year
  Sex: Female

DRUGS (11)
  1. MUCOSTA [Concomitant]
     Indication: GASTRITIS
     Dosage: 100 MG, UNK
     Route: 048
     Dates: start: 20110401
  2. ALDACTONE [Concomitant]
     Indication: HYPERTENSION
     Dosage: 25 MG, UNK
     Route: 048
     Dates: start: 20110401
  3. ALLOPURINOL [Concomitant]
     Indication: HYPERURICAEMIA
     Dosage: 100 MG, UNK
     Route: 048
     Dates: start: 20110401
  4. MAGNESIUM SULFATE [Concomitant]
     Indication: CONSTIPATION
     Dosage: 750 MG, UNK
     Route: 048
     Dates: start: 20110401
  5. ASPIRIN [Suspect]
     Indication: CEREBRAL INFARCTION
     Dosage: DAILY DOSE 200 MG
     Route: 048
     Dates: start: 20110401, end: 20110417
  6. ASPIRIN [Suspect]
     Dosage: DAILY DOSE 100 MG
     Route: 048
     Dates: start: 20110418
  7. ADALAT [Concomitant]
     Indication: HYPERTENSION
     Dosage: 20 MG, UNK
     Route: 048
     Dates: start: 20110401
  8. ASPIRIN [Suspect]
     Indication: CHEST PAIN
     Dosage: DAILY DOSE 100 MG
     Route: 048
     Dates: start: 20040101, end: 20110331
  9. EBRANTIL [Concomitant]
     Indication: NEUROGENIC BLADDER
     Dosage: 30 MG, UNK
     Route: 048
     Dates: start: 20110401
  10. LANSOPRAZOLE [Concomitant]
     Indication: GASTRIC ULCER
     Dosage: 15 MG, UNK
     Route: 048
     Dates: start: 20110401
  11. DEPAS [Concomitant]
     Indication: INSOMNIA
     Dosage: 0.5 MG, UNK
     Route: 048
     Dates: start: 20110401

REACTIONS (10)
  - URINARY TRACT INFECTION [None]
  - BLADDER TAMPONADE [None]
  - PYREXIA [None]
  - SEPTIC SHOCK [None]
  - HYDRONEPHROSIS [None]
  - PYELONEPHRITIS ACUTE [None]
  - DISSEMINATED INTRAVASCULAR COAGULATION [None]
  - ANAEMIA [None]
  - HAEMATURIA [None]
  - SHOCK HAEMORRHAGIC [None]
